FAERS Safety Report 5084220-1 (Version None)
Quarter: 2006Q3

REPORT INFORMATION
  Report Type: 
  Country: None (occurrence: None)
  Receive Date: 20060821
  Receipt Date: 20060112
  Transmission Date: 20061208
  Serious: No
  Sender: FDA-Public Use
  Company Number: US-BRISTOL-MYERS SQUIBB COMPANY-13244876

PATIENT
  Age: 40 Year
  Sex: Female
  Weight: 104 kg

DRUGS (2)
  1. TEQUIN [Suspect]
     Indication: BRONCHITIS
     Dates: start: 20051205
  2. ZYRTEC [Concomitant]

REACTIONS (3)
  - APHTHOUS STOMATITIS [None]
  - DRY MOUTH [None]
  - ORAL DISCOMFORT [None]
